FAERS Safety Report 9102789 (Version 1)
Quarter: 2013Q1

REPORT INFORMATION
  Report Type: Spontaneous
  Country: US (occurrence: US)
  Receive Date: 20130218
  Receipt Date: 20130218
  Transmission Date: 20140127
  Serious: Yes (Death)
  Sender: FDA-Public Use
  Company Number: US-ELI_LILLY_AND_COMPANY-US201302001702

PATIENT
  Sex: Female

DRUGS (6)
  1. CYMBALTA [Suspect]
     Indication: DEPRESSION
     Dosage: 60 MG, BID
     Dates: start: 200906
  2. NORCO [Concomitant]
     Dosage: 10 MG, UNKNOWN
  3. OXYCONTIN [Concomitant]
     Dosage: 30 MG, UNK
  4. MORPHINE SULFATE [Concomitant]
  5. FENTANYL [Concomitant]
     Route: 062
  6. METHADONE HYDROCHLORIDE [Concomitant]
     Dosage: 260 MG, QD

REACTIONS (4)
  - Pancreatic carcinoma [Fatal]
  - Feeling abnormal [Unknown]
  - Hypokinesia [Unknown]
  - Hearing impaired [Unknown]
